FAERS Safety Report 5121526-1 (Version None)
Quarter: 2006Q4

REPORT INFORMATION
  Report Type: 
  Country: None (occurrence: None)
  Receive Date: 20061006
  Receipt Date: 20060829
  Transmission Date: 20070319
  Serious: Yes (Death, Life-Threatening, Hospitalization)
  Sender: FDA-Public Use
  Company Number: AU-SANOFI-SYNTHELABO-F01200601894

PATIENT
  Sex: Female

DRUGS (7)
  1. OXAZEPAM [Concomitant]
     Dates: end: 20060815
  2. SIMVASTIN [Concomitant]
     Dates: end: 20060815
  3. CITALOPRAM HYDROBROMIDE [Concomitant]
     Dates: end: 20060815
  4. NORVASC [Concomitant]
     Dates: end: 20060815
  5. BEVACIZUMAB [Suspect]
     Route: 042
     Dates: start: 20060721, end: 20060721
  6. CAPECITABINE [Suspect]
     Route: 048
     Dates: end: 20060701
  7. OXALIPLATIN [Suspect]
     Indication: COLON CANCER
     Route: 042
     Dates: start: 20060721, end: 20060721

REACTIONS (12)
  - ATELECTASIS [None]
  - BLOOD POTASSIUM DECREASED [None]
  - COLITIS [None]
  - DEHYDRATION [None]
  - FALL [None]
  - GENERAL PHYSICAL HEALTH DETERIORATION [None]
  - NAUSEA [None]
  - PLEURAL EFFUSION [None]
  - PLEURITIC PAIN [None]
  - PULMONARY EMBOLISM [None]
  - URINARY TRACT INFECTION [None]
  - VOMITING [None]
